FAERS Safety Report 19273152 (Version 5)
Quarter: 2021Q4

REPORT INFORMATION
  Report Type: Spontaneous
  Country: US (occurrence: US)
  Receive Date: 20210519
  Receipt Date: 20211112
  Transmission Date: 20220304
  Serious: No
  Sender: FDA-Public Use
  Company Number: US-SA-SAC20210518000055

PATIENT
  Age: 17 Year
  Sex: Male

DRUGS (2)
  1. CABLIVI [Suspect]
     Active Substance: CAPLACIZUMAB-YHDP
     Indication: Thrombotic microangiopathy
     Dosage: 11 MG, QD
     Route: 058
     Dates: start: 20210501
  2. RITUXIMAB [Suspect]
     Active Substance: RITUXIMAB

REACTIONS (6)
  - Arthralgia [Unknown]
  - Joint stiffness [Unknown]
  - Mood swings [Unknown]
  - Jaundice [Unknown]
  - General physical health deterioration [Unknown]
  - Off label use [Unknown]
